FAERS Safety Report 7774034 (Version 10)
Quarter: 2012Q4

REPORT INFORMATION
  Report Type: 
  Country: US (occurrence: US)
  Receive Date: 20110126
  Receipt Date: 20121017
  Transmission Date: 20130627
  Serious: Yes (Hospitalization, Other)
  Sender: FDA-Public Use
  Company Number: US-BIOGENIDEC-2011BI001855

PATIENT
  Age: 48 Year
  Sex: Female
  Weight: 85 kg

DRUGS (12)
  1. TYSABRI [Suspect]
     Indication: MULTIPLE SCLEROSIS
     Route: 042
     Dates: start: 20080512, end: 20101217
  2. BACLOFEN [Concomitant]
  3. BACLOFEN [Concomitant]
  4. ATENOLOL [Concomitant]
  5. MULTIVITAMIN [Concomitant]
  6. CETIRIZINE [Concomitant]
     Indication: MULTIPLE ALLERGIES
  7. ZANTAC [Concomitant]
  8. FISH OIL [Concomitant]
  9. ASPIRIN [Concomitant]
  10. VITAMIN B12 [Concomitant]
  11. VITAMIN D3 [Concomitant]
  12. TRAMADOL [Concomitant]
     Indication: PAIN

REACTIONS (11)
  - Progressive multifocal leukoencephalopathy [Not Recovered/Not Resolved]
  - Immune reconstitution inflammatory syndrome [Not Recovered/Not Resolved]
  - Haemoglobin decreased [Unknown]
  - Retroperitoneal haemorrhage [Unknown]
  - Haematoma [Unknown]
  - Mesenteric vein thrombosis [Unknown]
  - Convulsion [Unknown]
  - Urinary tract infection [Unknown]
  - Blood potassium decreased [Unknown]
  - Nausea [Unknown]
  - Diarrhoea [Unknown]
